FAERS Safety Report 25086991 (Version 1)
Quarter: 2025Q1

REPORT INFORMATION
  Report Type: Report from Study
  Country: VN (occurrence: VN)
  Receive Date: 20250318
  Receipt Date: 20250318
  Transmission Date: 20250409
  Serious: Yes (Other)
  Sender: ALEXION PHARMACEUTICALS
  Company Number: VN-AstraZeneca-CH-00824460A

PATIENT

DRUGS (1)
  1. ACALABRUTINIB [Suspect]
     Active Substance: ACALABRUTINIB
     Dosage: 200 MILLIGRAM, QD

REACTIONS (2)
  - Accident [Unknown]
  - Spinal osteoarthritis [Unknown]
